FAERS Safety Report 18007922 (Version 1)
Quarter: 2020Q3

REPORT INFORMATION
  Report Type: Other
  Country: AU (occurrence: AU)
  Receive Date: 20200710
  Receipt Date: 20200710
  Transmission Date: 20201103
  Serious: Yes (Hospitalization)
  Sender: FDA-Public Use
  Company Number: AU-SERVIER-S20006463

PATIENT

DRUGS (1)
  1. PEGASPARGASE [Suspect]
     Active Substance: PEGASPARGASE
     Indication: ACUTE LYMPHOCYTIC LEUKAEMIA
     Dosage: UNK
     Route: 042
     Dates: start: 20200510, end: 20200510

REACTIONS (4)
  - Gastrointestinal haemorrhage [Not Recovered/Not Resolved]
  - Coagulopathy [Not Recovered/Not Resolved]
  - Infarction [Not Recovered/Not Resolved]
  - Nervous system disorder [Not Recovered/Not Resolved]

NARRATIVE: CASE EVENT DATE: 20200520
